FAERS Safety Report 6757009-2 (Version None)
Quarter: 2010Q2

REPORT INFORMATION
  Report Type: 
  Country: None (occurrence: None)
  Receive Date: 20100604
  Receipt Date: 20100225
  Transmission Date: 20101027
  Serious: Yes (Hospitalization, Other)
  Sender: FDA-Public Use
  Company Number: NL-MEDIMMUNE-MEDI-0011230

PATIENT
  Sex: Female
  Weight: 5.9 kg

DRUGS (2)
  1. SYNAGIS [Suspect]
     Route: 030
     Dates: start: 20091008, end: 20100128
  2. SYNAGIS [Suspect]
     Route: 030
     Dates: start: 20100225, end: 20100225

REACTIONS (1)
  - DEHYDRATION [None]
